FAERS Safety Report 5373413-1 (Version None)
Quarter: 2007Q2

REPORT INFORMATION
  Report Type: 
  Country: None (occurrence: None)
  Receive Date: 20070626
  Receipt Date: 20070626
  Transmission Date: 20071010
  Serious: Yes (Other)
  Sender: FDA-Public Use
  Company Number: None

PATIENT
  Age: 92 Year
  Sex: Female

DRUGS (2)
  1. AMOXICILLIN [Suspect]
     Indication: URINARY TRACT INFECTION
     Dosage: 250MG Q8H PO
     Route: 048
     Dates: start: 20070620, end: 20070623
  2. LIDODERM [Suspect]
     Indication: PAIN
     Dosage: ON 12 H OFF 12 H TRANSDERMAL
     Route: 062
     Dates: start: 20070615, end: 20070623

REACTIONS (1)
  - RASH ERYTHEMATOUS [None]
